FAERS Safety Report 7563276-8 (Version None)
Quarter: 2011Q2

REPORT INFORMATION
  Report Type: 
  Country: None (occurrence: None)
  Receive Date: 20110622
  Receipt Date: 20110613
  Transmission Date: 20111010
  Serious: Yes (Other)
  Sender: FDA-Public Use
  Company Number: US-ASTRAZENECA-2011SE35832

PATIENT
  Age: 30 Year
  Sex: Female
  Weight: 57 kg

DRUGS (6)
  1. SEROQUEL [Suspect]
     Indication: PANIC ATTACK
     Dosage: UNKNOWN DOSE FOUR TIMES A DAY
     Route: 048
     Dates: start: 20080101, end: 20080301
  2. ZOLOFT [Suspect]
     Indication: PANIC ATTACK
     Route: 048
     Dates: start: 20080101, end: 20090101
  3. XANAX [Concomitant]
     Indication: SLEEP DISORDER
  4. EFFEXOR XR [Suspect]
     Indication: PANIC ATTACK
     Route: 048
     Dates: start: 20090101
  5. SEROQUEL [Suspect]
     Dosage: UNKNOWN DOSE ONCE A DAY
     Route: 048
     Dates: start: 20080301, end: 20090101
  6. XANAX [Concomitant]
     Indication: PANIC ATTACK

REACTIONS (4)
  - ATTENTION DEFICIT/HYPERACTIVITY DISORDER [None]
  - OFF LABEL USE [None]
  - WEIGHT INCREASED [None]
  - IMPAIRED DRIVING ABILITY [None]
